FAERS Safety Report 4949120-3 (Version None)
Quarter: 2006Q1

REPORT INFORMATION
  Report Type: 
  Country: None (occurrence: None)
  Receive Date: 20060321
  Receipt Date: 20060208
  Transmission Date: 20060701
  Serious: Yes (Death, Hospitalization, Disabling)
  Sender: FDA-Public Use
  Company Number: US-MERCK-0602USA02290

PATIENT
  Age: 59 Year
  Sex: Female
  Weight: 68 kg

DRUGS (3)
  1. VIOXX [Suspect]
     Indication: ARTHROPATHY
     Route: 048
     Dates: end: 20040215
  2. VIOXX [Suspect]
     Indication: MUSCULOSKELETAL DISORDER
     Route: 048
     Dates: end: 20040215
  3. APAP TAB [Concomitant]
     Route: 065

REACTIONS (4)
  - BACK INJURY [None]
  - DEATH [None]
  - HERNIA [None]
  - MYOCARDIAL INFARCTION [None]
